FAERS Safety Report 5643197-8 (Version None)
Quarter: 2008Q1

REPORT INFORMATION
  Report Type: 
  Country: None (occurrence: None)
  Receive Date: 20080228
  Receipt Date: 20080220
  Transmission Date: 20080703
  Serious: Yes (Hospitalization)
  Sender: FDA-Public Use
  Company Number: BR-ABBOTT-08P-020-0439355-00

PATIENT
  Sex: Female
  Weight: 60 kg

DRUGS (9)
  1. HUMIRA [Suspect]
     Indication: RHEUMATOID ARTHRITIS
     Route: 058
     Dates: start: 20070301, end: 20080201
  2. MAGISTRAL FORMULA WITH TENOXICAM AND FAMOTIDINE [Concomitant]
     Indication: RHEUMATOID ARTHRITIS
     Dates: start: 19880101
  3. GLIMEPIRIDE [Concomitant]
     Indication: DIABETES MELLITUS
     Route: 048
  4. ATENOLOL [Concomitant]
     Indication: HYPERTENSION
     Route: 048
  5. TRIMETAZIDINE HYDROCHLORIDE [Concomitant]
     Indication: CARDIAC DISORDER
     Route: 048
  6. PROPATYLNITRATE [Concomitant]
     Indication: CARDIAC DISORDER
     Route: 048
  7. DICLOFENAC SODIUM [Concomitant]
     Indication: PAIN
     Dates: start: 20080125, end: 20080126
  8. UNKNOWN [Concomitant]
     Indication: PAIN
     Dates: start: 20080125, end: 20080126
  9. RACHIDIAL ANESTHETIC [Concomitant]
     Indication: DRUG USE FOR UNKNOWN INDICATION

REACTIONS (2)
  - EXOSTOSIS [None]
  - GAIT DISTURBANCE [None]
